FAERS Safety Report 7241712-4 (Version None)
Quarter: 2011Q1

REPORT INFORMATION
  Report Type: 
  Country: None (occurrence: None)
  Receive Date: 20110124
  Receipt Date: 20110118
  Transmission Date: 20110831
  Serious: Yes (Other)
  Sender: FDA-Public Use
  Company Number: PHHY2011US03969

PATIENT
  Sex: Male

DRUGS (9)
  1. LEVOTHYROXINE [Concomitant]
  2. EXJADE [Suspect]
     Dosage: 500 MG, UNK
     Dates: start: 20110119
  3. GLYBURIDE [Concomitant]
  4. EXJADE [Suspect]
     Dosage: 500 MG, UNK
  5. FOLIC ACID [Concomitant]
  6. METOPROLOL TARTRATE [Concomitant]
  7. PRAMIPEXOLE [Concomitant]
  8. SIMVASTATIN [Concomitant]
     Dosage: 10 MG, UNK
  9. ASPIRIN [Concomitant]

REACTIONS (3)
  - PNEUMONIA [None]
  - CEREBROVASCULAR ACCIDENT [None]
  - HAEMOGLOBIN DECREASED [None]
